FAERS Safety Report 19752429 (Version 1)
Quarter: 2021Q3

REPORT INFORMATION
  Report Type: Report from Study
  Country: None (occurrence: NL)
  Receive Date: 20210827
  Receipt Date: 20210827
  Transmission Date: 20211014
  Serious: Yes (Hospitalization)
  Sender: FDA-Public Use
  Company Number: NL-ABBVIE-21K-114-4056799-00

PATIENT
  Sex: Male

DRUGS (4)
  1. DUODOPA [Suspect]
     Active Substance: CARBIDOPA\LEVODOPA
     Indication: PARKINSON^S DISEASE
     Route: 050
     Dates: start: 20160426
  2. SUDOCREAM (NON?ABBVIE) [Concomitant]
     Indication: STOMA SITE REACTION
  3. DUODOPA [Suspect]
     Active Substance: CARBIDOPA\LEVODOPA
     Dosage: MD: 6.3 ML, CD: 4.3 ML/H, ED: 2.0 ML; CND: 3.2ML/H
     Route: 050
  4. DUODOPA [Suspect]
     Active Substance: CARBIDOPA\LEVODOPA
     Dosage: MD: 6.3 ML, CD: 4.4 ML/H, ED: 2.0 ML; NIGHT MD:6.3ML; END:1.5ML; CND:3.3 ML/H
     Route: 050

REACTIONS (2)
  - Hallucination [Not Recovered/Not Resolved]
  - Hypersexuality [Not Recovered/Not Resolved]
